FAERS Safety Report 6834918-7 (Version None)
Quarter: 2010Q3

REPORT INFORMATION
  Report Type: 
  Country: None (occurrence: None)
  Receive Date: 20100712
  Receipt Date: 20071112
  Transmission Date: 20110219
  Serious: Yes (Other)
  Sender: FDA-Public Use
  Company Number: US-PFIZER INC-2007034143

PATIENT
  Sex: Female
  Weight: 84 kg

DRUGS (8)
  1. CHANTIX [Suspect]
     Indication: SMOKING CESSATION THERAPY
     Dates: start: 20070407
  2. ACETYLSALICYLIC ACID [Concomitant]
  3. SERAX [Concomitant]
  4. ALBUTEROL [Concomitant]
  5. SPIRIVA [Concomitant]
  6. LORTAB [Concomitant]
  7. VITAMINS [Concomitant]
  8. MONTELUKAST SODIUM [Concomitant]

REACTIONS (6)
  - GINGIVAL PAIN [None]
  - INFECTION [None]
  - SENSITIVITY OF TEETH [None]
  - SOMNOLENCE [None]
  - TOOTHACHE [None]
  - WISDOM TEETH REMOVAL [None]
